FAERS Safety Report 5134535-3 (Version None)
Quarter: 2006Q4

REPORT INFORMATION
  Report Type: 
  Country: None (occurrence: None)
  Receive Date: 20061019
  Receipt Date: 20061013
  Transmission Date: 20070319
  Serious: Yes (Hospitalization)
  Sender: FDA-Public Use
  Company Number: 2006-05395

PATIENT
  Age: 52 Year
  Sex: Male

DRUGS (7)
  1. PREDNISONE TAB [Suspect]
     Indication: IMMUNOSUPPRESSION
     Dosage: 5 MG, DAILY, ORAL
     Route: 048
     Dates: start: 19930101
  2. CYCLOSPORINE [Suspect]
     Indication: IMMUNOSUPPRESSION
     Dosage: 4 MG/KG Q 12 HRS, ORAL
     Route: 048
     Dates: start: 19930101, end: 20011101
  3. TACROLIMUS (TACROLIMUS) [Suspect]
     Indication: IMMUNOSUPPRESSION
     Dosage: 0.5 MG Q 12 HRS, ORAL
     Route: 048
     Dates: start: 20011101
  4. FLUVASTATIN [Concomitant]
  5. ATORVASTATIN CALCIUM [Concomitant]
  6. TELMISARTAN [Concomitant]
  7. ACENOCOUMAROL [Concomitant]

REACTIONS (2)
  - ACUTE MYOCARDIAL INFARCTION [None]
  - HYPERCHOLESTEROLAEMIA [None]
